FAERS Safety Report 24762134 (Version 2)
Quarter: 2025Q1

REPORT INFORMATION
  Report Type: 
  Country: JP (occurrence: JP)
  Receive Date: 20241221
  Receipt Date: 20250322
  Transmission Date: 20250409
  Serious: Yes (Death, Hospitalization, Other)
  Sender: CELLTRION
  Company Number: JP-JPNKAYAKU-2024JPNK044879

PATIENT

DRUGS (12)
  1. TRASTUZUMAB [Suspect]
     Active Substance: TRASTUZUMAB
     Indication: Gastric cancer
     Route: 042
     Dates: start: 20241016, end: 20241016
  2. OXALIPLATIN [Suspect]
     Active Substance: OXALIPLATIN
     Indication: Gastric cancer
     Route: 042
     Dates: start: 20241016, end: 20241016
  3. GIMERACIL\OTERACIL\TEGAFUR [Suspect]
     Active Substance: GIMERACIL\OTERACIL POTASSIUM\TEGAFUR
     Indication: Gastric cancer
     Route: 042
     Dates: start: 20241016, end: 20241024
  4. METFORMIN HYDROCHLORIDE [Concomitant]
     Active Substance: METFORMIN HYDROCHLORIDE
     Route: 065
  5. CANDESARTAN [Concomitant]
     Active Substance: CANDESARTAN
     Route: 065
  6. LEVOCETIRIZINE HYDROCHLORIDE [Concomitant]
     Active Substance: LEVOCETIRIZINE HYDROCHLORIDE
     Route: 065
  7. TRAMADOL HYDROCHLORIDE [Concomitant]
     Active Substance: TRAMADOL HYDROCHLORIDE
     Route: 065
     Dates: start: 20241011
  8. VONOPRAZAN FUMARATE [Concomitant]
     Active Substance: VONOPRAZAN FUMARATE
     Route: 065
     Dates: start: 20241002
  9. FENTANYL [Concomitant]
     Active Substance: FENTANYL
     Route: 065
     Dates: start: 20241024, end: 20241026
  10. FOSNETUPITANT CHLORIDE HYDROCHLORIDE [Concomitant]
     Active Substance: FOSNETUPITANT CHLORIDE HYDROCHLORIDE
     Route: 065
     Dates: start: 20241016, end: 20241016
  11. PALONOSETRON [Concomitant]
     Active Substance: PALONOSETRON
     Route: 065
     Dates: start: 20241016, end: 20241016
  12. DECADRON [Concomitant]
     Active Substance: DEXAMETHASONE
     Route: 065
     Dates: start: 20241016, end: 20241016

REACTIONS (2)
  - Interstitial lung disease [Fatal]
  - Intentional product use issue [Unknown]

NARRATIVE: CASE EVENT DATE: 20241022
